FAERS Safety Report 7370679-3 (Version None)
Quarter: 2011Q1

REPORT INFORMATION
  Report Type: 
  Country: None (occurrence: None)
  Receive Date: 20110323
  Receipt Date: 20110322
  Transmission Date: 20110831
  Serious: Yes (Hospitalization)
  Sender: FDA-Public Use
  Company Number: GB-BAYER-2011-025140

PATIENT
  Age: 50 Year
  Sex: Female

DRUGS (4)
  1. PHENYTOIN [Concomitant]
  2. PHENOBARBITAL [Concomitant]
  3. CARBAMAZEPINE [Concomitant]
  4. PARACETAMOL [Suspect]
     Dosage: DAILY DOSE 4 G

REACTIONS (1)
  - METABOLIC ACIDOSIS [None]
